FAERS Safety Report 9469236 (Version 1)
Quarter: 2013Q3

REPORT INFORMATION
  Report Type: Spontaneous
  Country: US (occurrence: US)
  Receive Date: 20130821
  Receipt Date: 20130821
  Transmission Date: 20140515
  Serious: No
  Sender: FDA-Public Use
  Company Number: US-009507513-1308USA006746

PATIENT
  Age: 10 Year
  Sex: Male

DRUGS (5)
  1. DULERA [Suspect]
     Indication: ASTHMA
     Dosage: 2 PUFFS TWICE A DAY
     Route: 055
  2. SINGULAIR [Concomitant]
  3. NEXIUM [Concomitant]
  4. MIRALAX [Concomitant]
  5. ALBUTEROL [Concomitant]

REACTIONS (1)
  - Weight increased [Not Recovered/Not Resolved]
